FAERS Safety Report 18854596 (Version 3)
Quarter: 2021Q1

REPORT INFORMATION
  Report Type: Spontaneous
  Country: DE (occurrence: DE)
  Receive Date: 20210205
  Receipt Date: 20210326
  Transmission Date: 20210420
  Serious: Yes (Death, Hospitalization)
  Sender: FDA-Public Use
  Company Number: DE-ALXN-A202101728

PATIENT
  Sex: Female
  Weight: 3 kg

DRUGS (6)
  1. STRENSIQ [Suspect]
     Active Substance: ASFOTASE ALFA
     Dosage: 10 MG, TIW (MONDAY/WEDNESDAY/FRIDAY)
     Route: 058
     Dates: start: 20200224, end: 20200311
  2. STRENSIQ [Suspect]
     Active Substance: ASFOTASE ALFA
     Dosage: 8 MG, TIW (MONDAY/WEDNESDAY/FRIDAY)
     Route: 058
     Dates: start: 20200116
  3. STRENSIQ [Suspect]
     Active Substance: ASFOTASE ALFA
     Dosage: 9 MG, TIW (MONDAY/WEDNESDAY/FRIDAY)
     Route: 058
     Dates: start: 20200211
  4. PYRIDOXIN [Concomitant]
     Active Substance: PYRIDOXINE
     Indication: PRODUCT USED FOR UNKNOWN INDICATION
     Dosage: 20 MG, TID
     Route: 048
  5. STRENSIQ [Suspect]
     Active Substance: ASFOTASE ALFA
     Indication: HYPOPHOSPHATASIA
     Dosage: 7 MG, TIW (MONDAY/WEDNESDAY/FRIDAY)
     Route: 058
     Dates: start: 20200107
  6. STRENSIQ [Suspect]
     Active Substance: ASFOTASE ALFA
     Dosage: 10 MG, TIW (MONDAY/WEDNESDAY/FRIDAY)
     Route: 058
     Dates: start: 20200201

REACTIONS (1)
  - Respiratory failure [Fatal]
